FAERS Safety Report 14392267 (Version 2)
Quarter: 2018Q1

REPORT INFORMATION
  Report Type: Spontaneous
  Country: JP (occurrence: JP)
  Receive Date: 20180116
  Receipt Date: 20180222
  Transmission Date: 20180509
  Serious: Yes (Hospitalization, Other)
  Sender: FDA-Public Use
  Company Number: JP-GLAXOSMITHKLINE-JP2018JPN004884

PATIENT
  Age: 90 Year
  Sex: Male
  Weight: 44 kg

DRUGS (3)
  1. ACICLOVIR [Suspect]
     Active Substance: ACYCLOVIR
     Indication: HERPES ZOSTER
     Dosage: UNK
     Route: 041
     Dates: start: 20171227, end: 20171227
  2. VALTREX [Suspect]
     Active Substance: VALACYCLOVIR HYDROCHLORIDE
     Indication: HERPES ZOSTER
     Dosage: 1000 MG, TID
     Route: 048
     Dates: start: 20171227, end: 20180108
  3. MAGMITT [Concomitant]
     Active Substance: MAGNESIUM OXIDE
     Dosage: UNK

REACTIONS (13)
  - Product use issue [Unknown]
  - Altered state of consciousness [Recovered/Resolved]
  - Vein collapse [Recovering/Resolving]
  - Nephropathy [Unknown]
  - Urine output decreased [Recovered/Resolved]
  - Renal cyst [Unknown]
  - Prescribed overdose [Unknown]
  - Toxic encephalopathy [Unknown]
  - Drug level increased [Unknown]
  - Toxicity to various agents [Recovering/Resolving]
  - Bacteraemia [Recovering/Resolving]
  - Disuse syndrome [Recovering/Resolving]
  - Acute kidney injury [Recovered/Resolved]

NARRATIVE: CASE EVENT DATE: 20171227
